FAERS Safety Report 21058207 (Version 1)
Quarter: 2022Q3

REPORT INFORMATION
  Report Type: Spontaneous
  Country: GB (occurrence: GB)
  Receive Date: 20220708
  Receipt Date: 20220708
  Transmission Date: 20221026
  Serious: Yes (Other)
  Sender: FDA-Public Use
  Company Number: GB-NOVARTISPH-NVSC2022GB144842

PATIENT
  Age: 34 Year
  Sex: Female

DRUGS (2)
  1. TAFINLAR [Suspect]
     Active Substance: DABRAFENIB MESYLATE
     Indication: Malignant melanoma
     Dosage: UNK
     Route: 065
  2. MEKINIST [Suspect]
     Active Substance: TRAMETINIB DIMETHYL SULFOXIDE
     Indication: Malignant melanoma
     Dosage: UNK
     Route: 065

REACTIONS (6)
  - Malignant melanoma [Unknown]
  - Malignant neoplasm progression [Unknown]
  - Metastases to abdominal cavity [Unknown]
  - Ascites [Unknown]
  - Nodule [Unknown]
  - Eastern Cooperative Oncology Group performance status worsened [Unknown]
